FAERS Safety Report 20748695 (Version 1)
Quarter: 2022Q2

REPORT INFORMATION
  Report Type: Spontaneous
  Country: GB (occurrence: GB)
  Receive Date: 20220426
  Receipt Date: 20220426
  Transmission Date: 20220720
  Serious: Yes (Hospitalization)
  Sender: FDA-Public Use
  Company Number: GB-AMGEN-GBRSP2021186202

PATIENT
  Age: 21 Year
  Sex: Female

DRUGS (1)
  1. ADALIMUMAB [Suspect]
     Active Substance: ADALIMUMAB
     Indication: Crohn^s disease
     Dosage: 40 MILLIGRAM, QWK
     Route: 058
     Dates: start: 20190228

REACTIONS (3)
  - Unevaluable event [Unknown]
  - Antibiotic therapy [Unknown]
  - Off label use [Unknown]

NARRATIVE: CASE EVENT DATE: 20190228
